FAERS Safety Report 6308821-5 (Version None)
Quarter: 2009Q3

REPORT INFORMATION
  Report Type: 
  Country: None (occurrence: None)
  Receive Date: 20090813
  Receipt Date: 20080815
  Transmission Date: 20100115
  Serious: No
  Sender: FDA-Public Use
  Company Number: US-ALLERGAN-0810140US

PATIENT
  Age: 39 Year
  Sex: Female

DRUGS (7)
  1. COMBIGAN [Suspect]
     Indication: GLAUCOMA
     Dosage: 1 GTT, BID
     Route: 047
     Dates: start: 20080711, end: 20080721
  2. LUMIGAN [Concomitant]
     Indication: GLAUCOMA
     Dosage: 1 GTT, QHS
     Route: 047
     Dates: start: 20070901
  3. LIPITOR [Concomitant]
     Indication: BLOOD CHOLESTEROL
     Dosage: UNK, QD
  4. SINGULAIR [Concomitant]
     Indication: SEASONAL ALLERGY
     Dosage: UNK, PRN
  5. ZYRTEC [Concomitant]
     Indication: SEASONAL ALLERGY
     Dosage: UNK, PRN
  6. NASACORT [Concomitant]
     Indication: SEASONAL ALLERGY
  7. ORTHO CYCLEN-28 [Concomitant]
     Indication: CONTRACEPTION

REACTIONS (2)
  - MYDRIASIS [None]
  - VISION BLURRED [None]
